FAERS Safety Report 9030431 (Version 1)
Quarter: 2013Q1

REPORT INFORMATION
  Report Type: Spontaneous
  Country: US (occurrence: US)
  Receive Date: 20130122
  Receipt Date: 20130122
  Transmission Date: 20140127
  Serious: No
  Sender: FDA-Public Use
  Company Number: US-ASTRAZENECA-2013SE02437

PATIENT
  Sex: 0

DRUGS (1)
  1. SEROQUEL [Suspect]
     Route: 048
     Dates: start: 1998, end: 2010

REACTIONS (4)
  - Insomnia [Unknown]
  - Anxiety [Unknown]
  - Cardiac disorder [Unknown]
  - Hypersensitivity [Unknown]
